FAERS Safety Report 7091501-9 (Version None)
Quarter: 2010Q4

REPORT INFORMATION
  Report Type: 
  Country: None (occurrence: None)
  Receive Date: 20101109
  Receipt Date: 20101101
  Transmission Date: 20110411
  Serious: Yes (Other)
  Sender: FDA-Public Use
  Company Number: JP-PFIZER INC-2010139034

PATIENT
  Age: 24 Year
  Sex: Male

DRUGS (3)
  1. BLINDED *NO SUBJECT DRUG [Suspect]
     Indication: FIBROMYALGIA
     Dosage: UNK
     Route: 048
     Dates: start: 20100929
  2. BLINDED *PLACEBO [Suspect]
     Indication: FIBROMYALGIA
     Dosage: UNK
     Route: 048
     Dates: start: 20100929
  3. BLINDED PREGABALIN [Suspect]
     Indication: FIBROMYALGIA
     Dosage: UNK
     Route: 048
     Dates: start: 20100929

REACTIONS (1)
  - CONVULSION [None]
